FAERS Safety Report 8079247-1 (Version None)
Quarter: 2012Q1

REPORT INFORMATION
  Report Type: 
  Country: None (occurrence: None)
  Receive Date: 20120128
  Receipt Date: 20110728
  Transmission Date: 20120608
  Serious: No
  Sender: FDA-Public Use
  Company Number: US-ABBOTT-11P-163-0842291-00

PATIENT
  Sex: Male
  Weight: 81.72 kg

DRUGS (6)
  1. LOVASTATIN [Concomitant]
     Indication: MYOCARDIAL INFARCTION
  2. HUMIRA [Suspect]
     Indication: PSORIASIS
  3. METOPROLOL TARTRATE [Concomitant]
     Indication: MYOCARDIAL INFARCTION
  4. HUMIRA [Suspect]
     Indication: CROHN'S DISEASE
     Route: 058
     Dates: start: 20110713, end: 20110713
  5. BENAZPRIL [Concomitant]
     Indication: MYOCARDIAL INFARCTION
  6. PREDNISONE TAB [Concomitant]
     Indication: CROHN'S DISEASE

REACTIONS (2)
  - INJECTION SITE ERYTHEMA [None]
  - INJECTION SITE SWELLING [None]
